FAERS Safety Report 12987628 (Version 1)
Quarter: 2016Q4

REPORT INFORMATION
  Report Type: Spontaneous
  Country: US (occurrence: US)
  Receive Date: 20161130
  Receipt Date: 20161130
  Transmission Date: 20170207
  Serious: Yes (Hospitalization)
  Sender: FDA-Public Use
  Company Number: None

PATIENT
  Age: 63 Year
  Sex: Female
  Weight: 109.1 kg

DRUGS (1)
  1. HUMIRA [Suspect]
     Active Substance: ADALIMUMAB
     Indication: PSORIASIS
     Dosage: 2 PENS DAY 1, 1 PEN DAYS 8-22 SUBCUTANEOUSLY
     Route: 058
     Dates: start: 20160929

REACTIONS (8)
  - Fall [None]
  - Skin ulcer [None]
  - Rib fracture [None]
  - Skin fissures [None]
  - Localised infection [None]
  - Dry skin [None]
  - Pneumonia [None]
  - Pruritus [None]

NARRATIVE: CASE EVENT DATE: 20160927
